FAERS Safety Report 6428864-0 (Version None)
Quarter: 2009Q4

REPORT INFORMATION
  Report Type: 
  Country: None (occurrence: None)
  Receive Date: 20091104
  Receipt Date: 20091104
  Transmission Date: 20100525
  Serious: Yes (Other)
  Sender: FDA-Public Use
  Company Number: None

PATIENT
  Age: 60 Year
  Sex: Male
  Weight: 58.9676 kg

DRUGS (1)
  1. LEVITRA [Suspect]

REACTIONS (1)
  - TRANSIENT GLOBAL AMNESIA [None]
